FAERS Safety Report 21183602 (Version 1)
Quarter: 2022Q3

REPORT INFORMATION
  Report Type: Other
  Country: PT (occurrence: PT)
  Receive Date: 20220808
  Receipt Date: 20220808
  Transmission Date: 20221027
  Serious: Yes (Other)
  Sender: FDA-Public Use
  Company Number: PT-PFIZER INC-202201009162

PATIENT
  Age: 72 Year
  Sex: Female

DRUGS (2)
  1. RITUXIMAB [Suspect]
     Active Substance: RITUXIMAB
     Indication: Systemic lupus erythematosus
     Route: 042
  2. PREDNISOLONE [Suspect]
     Active Substance: PREDNISOLONE
     Indication: Systemic lupus erythematosus
     Route: 065

REACTIONS (3)
  - Candida infection [Unknown]
  - Toxic skin eruption [Unknown]
  - Off label use [Unknown]
